FAERS Safety Report 24542193 (Version 1)
Quarter: 2024Q4

REPORT INFORMATION
  Report Type: Spontaneous
  Country: US (occurrence: US)
  Receive Date: 20241023
  Receipt Date: 20241023
  Transmission Date: 20250114
  Serious: Yes (Hospitalization, Disabling)
  Sender: SANOFI AVENTIS
  Company Number: US-SA-2024SA302518

PATIENT
  Age: 65 Year
  Sex: Male

DRUGS (2)
  1. DUPIXENT [Suspect]
     Active Substance: DUPILUMAB
     Indication: Asthma
     Dosage: 300 MG, QOW
     Route: 058
     Dates: start: 2019
  2. LORATADINE [Concomitant]
     Active Substance: LORATADINE
     Indication: Allergy to animal
     Dosage: UNK

REACTIONS (6)
  - COVID-19 [Unknown]
  - Respiratory tract infection viral [Unknown]
  - Arthropathy [Unknown]
  - Weight increased [Recovering/Resolving]
  - Wheezing [Unknown]
  - Varicose vein [Unknown]

NARRATIVE: CASE EVENT DATE: 20220101
